FAERS Safety Report 6450456-8 (Version None)
Quarter: 2009Q4

REPORT INFORMATION
  Report Type: 
  Country: None (occurrence: None)
  Receive Date: 20091123
  Receipt Date: 20090814
  Transmission Date: 20100525
  Serious: No
  Sender: FDA-Public Use
  Company Number: US-BAYER-200930050NA

PATIENT

DRUGS (1)
  1. ULTRAVIST 150 [Suspect]
     Dosage: TOTAL DAILY DOSE: 10 ML
     Dates: start: 20090814, end: 20090814

REACTIONS (2)
  - PAIN [None]
  - SKIN IRRITATION [None]
